FAERS Safety Report 4982166-8 (Version None)
Quarter: 2006Q2

REPORT INFORMATION
  Report Type: 
  Country: None (occurrence: None)
  Receive Date: 20060419
  Receipt Date: 20060327
  Transmission Date: 20061013
  Serious: Yes (Other)
  Sender: FDA-Public Use
  Company Number: US200603006562

PATIENT
  Sex: Male

DRUGS (2)
  1. HUMALOG MIX 75/25 [Suspect]
     Indication: DIABETES MELLITUS
     Dosage: SEE IMAGE
     Dates: start: 20051001
  2. HUMALOG MIX 75/25 [Suspect]
     Indication: DIABETES MELLITUS
     Dosage: SEE IMAGE
     Dates: start: 20051001

REACTIONS (5)
  - BLOOD GLUCOSE INCREASED [None]
  - ECZEMA [None]
  - IRON DEFICIENCY ANAEMIA [None]
  - PHARMACEUTICAL PRODUCT COMPLAINT [None]
  - STRESS [None]
